FAERS Safety Report 21413174 (Version 1)
Quarter: 2022Q4

REPORT INFORMATION
  Report Type: Spontaneous
  Country: US (occurrence: None)
  Receive Date: 20221004
  Receipt Date: 20221004
  Transmission Date: 20230112
  Serious: Yes (Hospitalization)
  Sender: FDA-Public Use
  Company Number: None

PATIENT
  Sex: Female

DRUGS (8)
  1. HUMIRA [Suspect]
     Active Substance: ADALIMUMAB
     Indication: Rheumatoid arthritis
     Dosage: OTHER QUANTITY : 40MG/0.4ML;?FREQUENCY : EVERY OTHER WEEK;?
     Route: 058
     Dates: start: 20190829
  2. AZITHROMYCIN TAB [Concomitant]
  3. BACTRIM TAB [Concomitant]
  4. BUT/APAP/CAF TAB [Concomitant]
  5. METHOTREXATE [Concomitant]
     Active Substance: METHOTREXATE
  6. NEO/POLY/HC SOL OTIC [Concomitant]
  7. PROMETHAZINE SOL DM [Concomitant]
  8. TYLENOL TAB [Concomitant]

REACTIONS (2)
  - Hernia [None]
  - Flatulence [None]
